FAERS Safety Report 16674789 (Version 2)
Quarter: 2019Q3

REPORT INFORMATION
  Report Type: Report from Study
  Country: US (occurrence: US)
  Receive Date: 20190806
  Receipt Date: 20190920
  Transmission Date: 20191004
  Serious: No
  Sender: FDA-Public Use
  Company Number: US-SA-2019SA204512

PATIENT
  Age: 72 Year
  Sex: Female
  Weight: 58.05 kg

DRUGS (1)
  1. ALIROCUMAB [Suspect]
     Active Substance: ALIROCUMAB
     Indication: HYPERLIPIDAEMIA
     Dosage: 75 MG, QOW
     Route: 058
     Dates: start: 201907

REACTIONS (2)
  - Device malfunction [Unknown]
  - Product dose omission [Unknown]

NARRATIVE: CASE EVENT DATE: 20190719
